FAERS Safety Report 8893004 (Version 1)
Quarter: 2012Q4

REPORT INFORMATION
  Report Type: 
  Country: US (occurrence: US)
  Receive Date: 20121107
  Receipt Date: 20121107
  Transmission Date: 20130627
  Serious: No
  Sender: FDA-Public Use
  Company Number: US-AMGEN-USASP2011040865

PATIENT
  Age: 0 Year
  Sex: Male

DRUGS (3)
  1. ENBREL [Suspect]
     Dosage: 50 mg, qwk
     Route: 064
     Dates: start: 200901, end: 200911
  2. ENBREL [Suspect]
     Dosage: 50 mg, qwk
     Route: 064
     Dates: start: 20060101, end: 200801
  3. METHOTREXATE [Concomitant]
     Dosage: 1 mg, qwk
     Route: 064
     Dates: start: 201002

REACTIONS (1)
  - Apgar score low [Recovered/Resolved]
